FAERS Safety Report 9983286 (Version 4)
Quarter: 2014Q3

REPORT INFORMATION
  Report Type: Report from Study
  Country: CA (occurrence: CA)
  Receive Date: 20140307
  Receipt Date: 20140703
  Transmission Date: 20150326
  Serious: Yes (Hospitalization, Other)
  Sender: FDA-Public Use
  Company Number: CA-INCYTE CORPORATION-2013IN002624

PATIENT
  Age: 77 Year
  Sex: Female

DRUGS (6)
  1. REGULAR VITA VIM [Concomitant]
     Dosage: UNK UKN, UNK
  2. VITAMIIN C [Concomitant]
     Dosage: UNK UKN, UNK
  3. JAKAFI [Suspect]
     Active Substance: RUXOLITINIB
     Indication: POLYCYTHAEMIA VERA
     Dosage: 20 MG, BID
     Route: 048
     Dates: start: 20131101
  4. ESTROGEN [Concomitant]
     Active Substance: ESTRONE\SUS SCROFA OVARY
     Dosage: UNK
  5. NATURAL VITAMIN D [Concomitant]
     Dosage: UNK (Q WEEKS, SUNDAY)
  6. JAKAFI [Suspect]
     Active Substance: RUXOLITINIB
     Indication: MYELOFIBROSIS
     Dosage: 10 MG, BID
     Route: 048
     Dates: start: 20140203, end: 201404

REACTIONS (8)
  - Dyspnoea [Unknown]
  - Fall [Unknown]
  - Diarrhoea [Unknown]
  - Pain in extremity [Unknown]
  - Full blood count decreased [Unknown]
  - Haemoglobin decreased [Unknown]
  - Memory impairment [Unknown]
  - Joint dislocation [Recovered/Resolved]

NARRATIVE: CASE EVENT DATE: 20131102
